FAERS Safety Report 20334821 (Version 2)
Quarter: 2022Q1

REPORT INFORMATION
  Report Type: Spontaneous
  Country: US (occurrence: US)
  Receive Date: 20220114
  Receipt Date: 20220310
  Transmission Date: 20220423
  Serious: Yes (Life-Threatening, Hospitalization, Other)
  Sender: FDA-Public Use
  Company Number: US-SA-SAC20220103000842

PATIENT

DRUGS (3)
  1. PRALUENT [Suspect]
     Active Substance: ALIROCUMAB
     Indication: Product used for unknown indication
     Dosage: UNK
     Route: 065
  2. CARVEDILOL [Suspect]
     Active Substance: CARVEDILOL
     Indication: Product used for unknown indication
     Dosage: UNK
  3. VYNDAMAX [Suspect]
     Active Substance: TAFAMIDIS
     Indication: Product used for unknown indication
     Dosage: UNK
     Dates: start: 20210922

REACTIONS (7)
  - Loss of consciousness [Unknown]
  - Dyspnoea [Unknown]
  - Renal disorder [Unknown]
  - Cardiac failure [Unknown]
  - Chills [Unknown]
  - Hypersensitivity [Unknown]
  - Hospitalisation [Unknown]

NARRATIVE: CASE EVENT DATE: 20211201
